FAERS Safety Report 14151648 (Version 2)
Quarter: 2018Q1

REPORT INFORMATION
  Report Type: Spontaneous
  Country: US (occurrence: US)
  Receive Date: 20171102
  Receipt Date: 20180201
  Transmission Date: 20180508
  Serious: No
  Sender: FDA-Public Use
  Company Number: US-HETERO CORPORATE-HET2017US00291

PATIENT
  Sex: Female
  Weight: 62 kg

DRUGS (1)
  1. INDOMETHACIN. [Suspect]
     Active Substance: INDOMETHACIN
     Indication: CLUSTER HEADACHE
     Dosage: 50 MG, TID
     Route: 065
     Dates: start: 20171018, end: 20171025

REACTIONS (2)
  - Drug ineffective [Unknown]
  - Product physical issue [Unknown]
